FAERS Safety Report 11454720 (Version 2)
Quarter: 2015Q3

REPORT INFORMATION
  Report Type: Spontaneous
  Country: US (occurrence: US)
  Receive Date: 20150831
  Receipt Date: 20150903
  Transmission Date: 20151125
  Serious: No
  Sender: FDA-Public Use
  Company Number: US-ELI_LILLY_AND_COMPANY-US201004008632

PATIENT
  Sex: Female

DRUGS (6)
  1. HUMALOG MIX75/25 [Suspect]
     Active Substance: INSULIN LISPRO
     Indication: DIABETES MELLITUS
     Dosage: 30 U, EACH MORNING
  2. CYMBALTA [Suspect]
     Active Substance: DULOXETINE HYDROCHLORIDE
     Indication: DIABETIC NEUROPATHY
     Dosage: 30 MG, DAILY (1/D)
     Dates: start: 201004, end: 20100424
  3. SINGULAIR [Concomitant]
     Active Substance: MONTELUKAST SODIUM
  4. HUMALOG MIX75/25 [Suspect]
     Active Substance: INSULIN LISPRO
     Indication: DIABETES MELLITUS
     Dosage: 30 U, EACH MORNING
     Dates: start: 2006
  5. HUMALOG MIX75/25 [Suspect]
     Active Substance: INSULIN LISPRO
     Dosage: 30 U, EACH EVENING
  6. HUMALOG MIX75/25 [Suspect]
     Active Substance: INSULIN LISPRO
     Dosage: 30 U, EACH EVENING
     Dates: start: 2006

REACTIONS (18)
  - Palpitations [Unknown]
  - Chills [Unknown]
  - Off label use [Recovered/Resolved]
  - Blood glucose decreased [Recovered/Resolved]
  - Vomiting [Unknown]
  - Dizziness [Unknown]
  - Heart rate increased [Unknown]
  - Tremor [Unknown]
  - Diabetic neuropathy [Unknown]
  - Agitation [Unknown]
  - Insomnia [Recovered/Resolved]
  - Nausea [Unknown]
  - Feeling jittery [Recovering/Resolving]
  - Thyroid disorder [Not Recovered/Not Resolved]
  - Pain [Unknown]
  - Decreased appetite [Unknown]
  - Hypersomnia [Unknown]
  - Sleep disorder [Unknown]

NARRATIVE: CASE EVENT DATE: 2008
